FAERS Safety Report 4933170-7 (Version None)
Quarter: 2006Q1

REPORT INFORMATION
  Report Type: 
  Country: None (occurrence: None)
  Receive Date: 20060111
  Receipt Date: 20041206
  Transmission Date: 20060701
  Serious: Yes (Hospitalization)
  Sender: FDA-Public Use
  Company Number: A001-002-006311

PATIENT
  Age: 91 Year
  Sex: Male

DRUGS (2)
  1. ARICEPT [Suspect]
     Indication: MEMORY IMPAIRMENT
     Dosage: 5 MG, 1 IN 1 D, ORAL  ; 10 MG, 1 IN 1 D, ORAL
     Route: 048
     Dates: start: 20020101, end: 20020101
  2. ARICEPT [Suspect]
     Indication: MEMORY IMPAIRMENT
     Dosage: 5 MG, 1 IN 1 D, ORAL  ; 10 MG, 1 IN 1 D, ORAL
     Route: 048
     Dates: start: 20020101

REACTIONS (3)
  - DIARRHOEA [None]
  - HAEMOGLOBIN DECREASED [None]
  - INSOMNIA [None]
